FAERS Safety Report 4469782-7 (Version None)
Quarter: 2004Q4

REPORT INFORMATION
  Report Type: 
  Country: None (occurrence: None)
  Receive Date: 20041008
  Receipt Date: 20040929
  Transmission Date: 20050328
  Serious: Yes (Hospitalization)
  Sender: FDA-Public Use
  Company Number: FI-ROCHE-381642

PATIENT
  Age: 66 Year
  Sex: Male

DRUGS (1)
  1. BONDRONAT [Suspect]
     Indication: BONE PAIN
     Dosage: DOSAGE REGIMEN: 6MG.
     Route: 042
     Dates: start: 20040615, end: 20040615

REACTIONS (2)
  - DEPRESSED LEVEL OF CONSCIOUSNESS [None]
  - GENERAL PHYSICAL HEALTH DETERIORATION [None]
